FAERS Safety Report 6046444-6 (Version None)
Quarter: 2009Q1

REPORT INFORMATION
  Report Type: 
  Country: None (occurrence: None)
  Receive Date: 20090122
  Receipt Date: 20090115
  Transmission Date: 20090719
  Serious: Yes (Other)
  Sender: FDA-Public Use
  Company Number: BR-ASTRAZENECA-2009UW01471

PATIENT
  Age: 81 Year
  Sex: Female

DRUGS (8)
  1. OMEPRAZOLE [Suspect]
     Indication: ABDOMINAL PAIN UPPER
     Route: 048
     Dates: start: 20040101
  2. SEROQUEL [Suspect]
     Indication: RESTLESSNESS
     Dosage: 1/2 OF A 25 MG TABLET / OD
     Route: 048
     Dates: start: 20081223, end: 20081223
  3. SEROQUEL [Suspect]
     Indication: AGGRESSION
     Dosage: 1/2 OF A 25 MG TABLET / OD
     Route: 048
     Dates: start: 20081223, end: 20081223
  4. SEROQUEL [Suspect]
     Indication: INSOMNIA
     Dosage: 1/2 OF A 25 MG TABLET / OD
     Route: 048
     Dates: start: 20081223, end: 20081223
  5. SEROQUEL [Suspect]
     Dosage: 1/4 OF A 25 MG TABLET / OD
     Route: 048
     Dates: start: 20081224
  6. SEROQUEL [Suspect]
     Dosage: 1/4 OF A 25 MG TABLET / OD
     Route: 048
     Dates: start: 20081224
  7. SEROQUEL [Suspect]
     Dosage: 1/4 OF A 25 MG TABLET / OD
     Route: 048
     Dates: start: 20081224
  8. EXELON [Concomitant]
     Indication: DEMENTIA ALZHEIMER'S TYPE
     Dates: start: 20080701

REACTIONS (4)
  - DEMENTIA ALZHEIMER'S TYPE [None]
  - DEPRESSION [None]
  - SOMNOLENCE [None]
  - URINARY INCONTINENCE [None]
